FAERS Safety Report 9932511 (Version 1)
Quarter: 2014Q1

REPORT INFORMATION
  Report Type: Spontaneous
  Country: US (occurrence: None)
  Receive Date: 20140227
  Receipt Date: 20140227
  Transmission Date: 20141002
  Serious: Yes (Other)
  Sender: FDA-Public Use
  Company Number: None

PATIENT
  Sex: Female
  Weight: 61.24 kg

DRUGS (1)
  1. YAZ GENERIC [Suspect]
     Indication: ACNE
     Dosage: 1 TAB, QDAY, PO
     Route: 048
     Dates: start: 201002, end: 201006

REACTIONS (2)
  - Acne [None]
  - Drug ineffective [None]
